FAERS Safety Report 7933853-0 (Version None)
Quarter: 2011Q4

REPORT INFORMATION
  Report Type: 
  Country: None (occurrence: None)
  Receive Date: 20111122
  Receipt Date: 20111115
  Transmission Date: 20120403
  Serious: Yes (Hospitalization)
  Sender: FDA-Public Use
  Company Number: US-SANOFI-AVENTIS-2011SA075725

PATIENT
  Age: 68 Year
  Sex: Female

DRUGS (2)
  1. ANTIHYPERTENSIVES [Suspect]
     Indication: PRODUCT USED FOR UNKNOWN INDICATION
     Route: 048
     Dates: start: 20110810
  2. LASIX [Suspect]

REACTIONS (3)
  - HYPONATRAEMIA [None]
  - OEDEMA [None]
  - HYPOKALAEMIA [None]
